FAERS Safety Report 21143237 (Version 2)
Quarter: 2022Q3

REPORT INFORMATION
  Report Type: Spontaneous
  Country: US (occurrence: US)
  Receive Date: 20220728
  Receipt Date: 20220921
  Transmission Date: 20221027
  Serious: Yes (Other)
  Sender: FDA-Public Use
  Company Number: US-JNJFOC-20220754910

PATIENT
  Sex: Female

DRUGS (4)
  1. ELMIRON [Suspect]
     Active Substance: PENTOSAN POLYSULFATE SODIUM
     Indication: Cystitis interstitial
     Route: 048
     Dates: start: 2007, end: 2013
  2. WARFARIN [Concomitant]
     Active Substance: WARFARIN
     Indication: Thrombosis
     Dates: start: 1994
  3. VITAMINS [Concomitant]
     Active Substance: VITAMINS
     Dates: start: 1985
  4. METFORMIN [Concomitant]
     Active Substance: METFORMIN HYDROCHLORIDE
     Indication: Diabetes mellitus
     Dates: start: 2003, end: 2013

REACTIONS (2)
  - Maculopathy [Unknown]
  - Off label use [Unknown]

NARRATIVE: CASE EVENT DATE: 20070101
